FAERS Safety Report 18706479 (Version 1)
Quarter: 2021Q1

REPORT INFORMATION
  Report Type: Spontaneous
  Country: US (occurrence: US)
  Receive Date: 20210106
  Receipt Date: 20210106
  Transmission Date: 20210419
  Serious: No
  Sender: FDA-Public Use
  Company Number: None

PATIENT
  Age: 71 Year
  Sex: Male
  Weight: 83 kg

DRUGS (1)
  1. CEFTAZIDIME. [Suspect]
     Active Substance: CEFTAZIDIME
     Indication: WOUND INFECTION
     Route: 041
     Dates: start: 20201223, end: 20201225

REACTIONS (6)
  - Nausea [None]
  - Headache [None]
  - Therapy cessation [None]
  - Refusal of treatment by patient [None]
  - Vomiting [None]
  - Treatment noncompliance [None]

NARRATIVE: CASE EVENT DATE: 20201225
